FAERS Safety Report 5481001-1 (Version None)
Quarter: 2007Q4

REPORT INFORMATION
  Report Type: 
  Country: None (occurrence: None)
  Receive Date: 20071009
  Receipt Date: 20070927
  Transmission Date: 20080405
  Serious: Yes (Hospitalization, Other)
  Sender: FDA-Public Use
  Company Number: JP-PFIZER INC-2007075796

PATIENT
  Age: 49 Year
  Sex: Male

DRUGS (1)
  1. NORVASC [Suspect]
     Dosage: DAILY DOSE:2.5MG-FREQ:DAILY
     Route: 048
     Dates: start: 20070501, end: 20070801

REACTIONS (2)
  - DIABETES MELLITUS [None]
  - PANCREATIC DISORDER [None]
